FAERS Safety Report 21179851 (Version 1)
Quarter: 2022Q3

REPORT INFORMATION
  Report Type: Spontaneous
  Country: TW (occurrence: TW)
  Receive Date: 20220805
  Receipt Date: 20220805
  Transmission Date: 20221027
  Serious: Yes (Hospitalization, Other)
  Sender: FDA-Public Use
  Company Number: TW-PFIZER INC-PV202200030046

PATIENT
  Age: 74 Year
  Sex: Male

DRUGS (2)
  1. LORLATINIB [Suspect]
     Active Substance: LORLATINIB
     Indication: Lung adenocarcinoma stage IV
     Dosage: 25 MG
     Route: 048
     Dates: start: 20220511
  2. LORLATINIB [Suspect]
     Active Substance: LORLATINIB
     Dosage: 4 DF, ADMINISTER BEFORE SLEEP, SWALLOW WHOLE TABLET
     Route: 048

REACTIONS (8)
  - Second primary malignancy [Unknown]
  - Small cell lung cancer [Unknown]
  - Oxygen saturation decreased [Unknown]
  - Dyspnoea [Recovering/Resolving]
  - Neoplasm progression [Unknown]
  - Depression [Unknown]
  - Tremor [Unknown]
  - Decreased appetite [Unknown]

NARRATIVE: CASE EVENT DATE: 20220501
